FAERS Safety Report 4490579-6 (Version None)
Quarter: 2004Q4

REPORT INFORMATION
  Report Type: 
  Country: None (occurrence: None)
  Receive Date: 20041102
  Receipt Date: 20041027
  Transmission Date: 20050328
  Serious: Yes (Death, Life-Threatening)
  Sender: FDA-Public Use
  Company Number: 200414060FR

PATIENT
  Age: 82 Year
  Sex: Female

DRUGS (8)
  1. LASILIX 40 MG [Suspect]
     Route: 048
     Dates: end: 20030201
  2. RENITEC 20 MG [Suspect]
     Route: 048
     Dates: end: 20030201
  3. HEMIGOXINE NATIVELLE [Suspect]
     Route: 048
     Dates: end: 20030201
  4. PREVISCAN 20 MG [Concomitant]
     Route: 048
  5. AMLOR [Concomitant]
     Route: 048
  6. ADANCOR [Concomitant]
     Route: 048
  7. NOLVADEX [Concomitant]
     Route: 048
  8. LEVOTHYROX [Concomitant]
     Route: 048

REACTIONS (10)
  - ANURIA [None]
  - BRADYCARDIA [None]
  - DEHYDRATION [None]
  - DIARRHOEA [None]
  - HYPERKALAEMIA [None]
  - HYPOTENSION [None]
  - INTERNATIONAL NORMALISED RATIO INCREASED [None]
  - MULTIPLE DRUG OVERDOSE [None]
  - RENAL FAILURE ACUTE [None]
  - SINUS ARREST [None]
